FAERS Safety Report 20721645 (Version 1)
Quarter: 2022Q2

REPORT INFORMATION
  Report Type: Other
  Country: ES (occurrence: ES)
  Receive Date: 20220418
  Receipt Date: 20220418
  Transmission Date: 20220721
  Serious: Yes (Other)
  Sender: FDA-Public Use
  Company Number: ES-DENTSPLY-2022SCDP000090

PATIENT
  Age: 84 Year
  Sex: Female

DRUGS (7)
  1. MEPIVACAINE [Suspect]
     Active Substance: MEPIVACAINE HYDROCHLORIDE
     Indication: Product used for unknown indication
     Dosage: UNK
     Route: 014
     Dates: start: 20220322, end: 20220322
  2. TRIAMCINOLONE [Suspect]
     Active Substance: TRIAMCINOLONE
     Indication: Product used for unknown indication
     Dosage: UNK
     Route: 014
     Dates: start: 20220322, end: 20220322
  3. METHYL AMINOLEVULINATE HYDROCHLORIDE [Concomitant]
     Active Substance: METHYL AMINOLEVULINATE HYDROCHLORIDE
     Indication: Product used for unknown indication
     Dosage: 160 MG / G METVIX CREAM (1 TUBE OF 2 G) EVERY 6 MONTHS
     Route: 061
     Dates: start: 20201016
  4. METFORMIN HYDROCHLORIDE [Concomitant]
     Active Substance: METFORMIN HYDROCHLORIDE
     Indication: Product used for unknown indication
     Dosage: 850 MILLIGRAM EVERY 8 HOURS METFORMINA KERN PHARMA 850 MG FILM-COATED TABLETS EFG, 50 TABLETS
     Route: 048
     Dates: start: 20120405
  5. LORAZEPAM [Concomitant]
     Active Substance: LORAZEPAM
     Indication: Product used for unknown indication
     Dosage: 1 MILLIGRAM A DAY LORAZEPAM KERN PHARMA 1 MG TABLET EFG, 50 TABLETS
     Route: 048
     Dates: start: 20120327
  6. LANTUS [Concomitant]
     Active Substance: INSULIN GLARGINE
     Indication: Product used for unknown indication
     Dosage: 28 INTERNATIONAL UNIT A DAY LANTUS SOLOSTAR 100 UNITS / ML SOLUTION FOR INJECTION IN A PRE-FILLED PE
     Route: 058
     Dates: start: 20140402
  7. LOSARTAN [Concomitant]
     Active Substance: LOSARTAN
     Indication: Product used for unknown indication
     Dosage: 100 MILLIGRAM LOSARTAN KERN PHARMA 100 MG FILM-COATED TABLETS EFG, 28 TABLETS
     Route: 048
     Dates: start: 20120405

REACTIONS (1)
  - Syncope [Recovered/Resolved]

NARRATIVE: CASE EVENT DATE: 20220322
